FAERS Safety Report 9933093 (Version 1)
Quarter: 2014Q1

REPORT INFORMATION
  Report Type: Spontaneous
  Country: US (occurrence: US)
  Receive Date: 20140228
  Receipt Date: 20140228
  Transmission Date: 20141002
  Serious: No
  Sender: FDA-Public Use
  Company Number: US-GLAXOSMITHKLINE-A1048852A

PATIENT
  Sex: Female

DRUGS (3)
  1. LAMICTAL [Suspect]
     Indication: AFFECTIVE DISORDER
     Dosage: 2.5MG PER DAY
     Route: 048
     Dates: start: 20131105
  2. REMERON [Concomitant]
  3. XANAX [Concomitant]

REACTIONS (2)
  - Insomnia [Not Recovered/Not Resolved]
  - Anxiety [Unknown]
